FAERS Safety Report 6419806-2 (Version None)
Quarter: 2009Q4

REPORT INFORMATION
  Report Type: 
  Country: None (occurrence: None)
  Receive Date: 20091029
  Receipt Date: 20091021
  Transmission Date: 20100525
  Serious: Yes (Other)
  Sender: FDA-Public Use
  Company Number: FR-JNJFOC-20091007153

PATIENT
  Age: 85 Year
  Sex: Female

DRUGS (2)
  1. CAELYX [Suspect]
     Dosage: 2ND CYCLE
     Route: 042
  2. CAELYX [Suspect]
     Indication: BREAST CANCER METASTATIC
     Dosage: CYCLE 1
     Route: 042

REACTIONS (1)
  - ANGINA PECTORIS [None]
